FAERS Safety Report 12714378 (Version 1)
Quarter: 2016Q3

REPORT INFORMATION
  Report Type: Spontaneous
  Country: US (occurrence: US)
  Receive Date: 20160905
  Receipt Date: 20160905
  Transmission Date: 20161109
  Serious: No
  Sender: FDA-Public Use
  Company Number: US-JAZZ-2016-US-008953

PATIENT
  Sex: Male

DRUGS (17)
  1. XYREM [Suspect]
     Active Substance: SODIUM OXYBATE
     Dosage: 2.75 G, BID
     Route: 048
     Dates: start: 201603
  2. MYLANTA GAS [Concomitant]
  3. CLARITIN [Concomitant]
     Active Substance: LORATADINE
  4. LISINOPRIL. [Concomitant]
     Active Substance: LISINOPRIL
  5. MODAFINIL. [Concomitant]
     Active Substance: MODAFINIL
  6. ALPRAZOLAM. [Concomitant]
     Active Substance: ALPRAZOLAM
  7. IBUPROFEN. [Concomitant]
     Active Substance: IBUPROFEN
  8. MULTIVITAMINS [Concomitant]
     Active Substance: VITAMINS
  9. AMOXICILLIN. [Concomitant]
     Active Substance: AMOXICILLIN
  10. CLEOCIN [Concomitant]
     Active Substance: CLINDAMYCIN PHOSPHATE
  11. XYREM [Suspect]
     Active Substance: SODIUM OXYBATE
     Indication: NARCOLEPSY
     Dosage: 2.25 G, BID
     Route: 048
     Dates: start: 201506, end: 201506
  12. XYREM [Suspect]
     Active Substance: SODIUM OXYBATE
     Dosage: DOSE ADJUSTMENTS
     Route: 048
     Dates: start: 2015, end: 2015
  13. B COMPLETE [Concomitant]
  14. SIMETHICONE (DIMETHICONE) [Concomitant]
     Active Substance: DIMETHICONE
  15. MILK OF MAGNESIA [Concomitant]
     Active Substance: MAGNESIUM HYDROXIDE
  16. ALEVE [Concomitant]
     Active Substance: NAPROXEN SODIUM
  17. PROVIGIL [Concomitant]
     Active Substance: MODAFINIL

REACTIONS (3)
  - Wrong technique in product usage process [Unknown]
  - Malaise [Unknown]
  - Rapid eye movements sleep abnormal [Not Recovered/Not Resolved]
